FAERS Safety Report 10981523 (Version 1)
Quarter: 2015Q1

REPORT INFORMATION
  Report Type: Spontaneous
  Country: US (occurrence: None)
  Receive Date: 20150227
  Receipt Date: 20150227
  Transmission Date: 20150721
  Serious: Yes (Other)
  Sender: FDA-Public Use
  Company Number: LMI-2014-00151

PATIENT
  Age: 44 Year
  Sex: Male
  Weight: 121.56 kg

DRUGS (1)
  1. DEFINITY [Suspect]
     Active Substance: PERFLUTREN
     Indication: ECHOCARDIOGRAM
     Dosage: 1.5 ML OF DEFINITY DILUTED IN 8.5 ML NORMAL SALINE) (1 ML,1 IN 1 D)
     Route: 040
     Dates: start: 20140415, end: 20140415

REACTIONS (5)
  - Respiratory distress [None]
  - Dizziness [None]
  - Urticaria [None]
  - Pharyngeal oedema [None]
  - Hypersensitivity [None]

NARRATIVE: CASE EVENT DATE: 20140415
